FAERS Safety Report 7306200-5 (Version None)
Quarter: 2011Q1

REPORT INFORMATION
  Report Type: 
  Country: None (occurrence: None)
  Receive Date: 20110222
  Receipt Date: 20110209
  Transmission Date: 20110831
  Serious: Yes (Hospitalization)
  Sender: FDA-Public Use
  Company Number: PHHY2011AU12442

PATIENT
  Age: 66 Year
  Sex: Female

DRUGS (6)
  1. DOXYCYCLINE [Concomitant]
  2. SULFAMETHOXAZOLE [Concomitant]
     Indication: PROPHYLAXIS
  3. FLUDARA [Suspect]
     Indication: CHRONIC LYMPHOCYTIC LEUKAEMIA
  4. TRIMETHOPRIM [Concomitant]
     Indication: PROPHYLAXIS
     Dosage: THREE TIMES WEEKLY
  5. CYCLOPHOSPHAMIDE [Suspect]
     Indication: CHRONIC LYMPHOCYTIC LEUKAEMIA
  6. RITUXIMAB [Suspect]

REACTIONS (13)
  - ERYTHEMA [None]
  - PYREXIA [None]
  - LYMPHADENOPATHY [None]
  - JOINT SWELLING [None]
  - GRANULOMA [None]
  - OEDEMA PERIPHERAL [None]
  - BACILLARY ANGIOMATOSIS [None]
  - SKIN LESION [None]
  - OSTEOMYELITIS [None]
  - CHOLELITHIASIS [None]
  - SUBCUTANEOUS NODULE [None]
  - GRANULOMA SKIN [None]
  - CELLULITIS [None]
